FAERS Safety Report 7460822-X (Version None)
Quarter: 2011Q2

REPORT INFORMATION
  Report Type: 
  Country: None (occurrence: None)
  Receive Date: 20110505
  Receipt Date: 20110425
  Transmission Date: 20111010
  Serious: Yes (Other)
  Sender: FDA-Public Use
  Company Number: US-ELI_LILLY_AND_COMPANY-US201105000868

PATIENT

DRUGS (3)
  1. GEMCITABINE HYDROCHLORIDE [Suspect]
     Indication: BLADDER TRANSITIONAL CELL CARCINOMA
     Dosage: 1250 MG/M2, ON DAY 1 AND 8 OF 21DAY CYCLE
  2. CISPLATIN [Concomitant]
     Indication: BLADDER TRANSITIONAL CELL CARCINOMA
     Dosage: 70 MG/M2, ON DAY 1 OF 21DAY CYCLE
  3. BEVACIZUMAB [Concomitant]
     Dosage: 15 MG/M2, ON DAY 1 OF 21DAY CYCLE

REACTIONS (1)
  - PULMONARY EMBOLISM [None]
